FAERS Safety Report 6509353-1 (Version None)
Quarter: 2009Q4

REPORT INFORMATION
  Report Type: 
  Country: None (occurrence: None)
  Receive Date: 20091218
  Receipt Date: 20091218
  Transmission Date: 20100525
  Serious: Yes (Other)
  Sender: FDA-Public Use
  Company Number: None

PATIENT
  Age: 29 Year
  Sex: Female
  Weight: 65.7716 kg

DRUGS (2)
  1. TRI LO SPRINTEC [Suspect]
     Indication: CONTRACEPTION
     Dosage: 1 PILL 1X/DAY PO
     Route: 048
     Dates: start: 20090901, end: 20091201
  2. ORTHO TRI-CYCLEN LO [Suspect]

REACTIONS (2)
  - MIGRAINE [None]
  - PRODUCT SUBSTITUTION ISSUE [None]
